FAERS Safety Report 21774835 (Version 4)
Quarter: 2023Q1

REPORT INFORMATION
  Report Type: Spontaneous
  Country: GB (occurrence: GB)
  Receive Date: 20221224
  Receipt Date: 20230131
  Transmission Date: 20230418
  Serious: Yes (Other)
  Sender: FDA-Public Use
  Company Number: GB-MYLANLABS-2022M1143971

PATIENT
  Age: 41 Year
  Sex: Male

DRUGS (9)
  1. CLOZARIL [Suspect]
     Active Substance: CLOZAPINE
     Indication: Schizophrenia
     Dosage: 175 MILLIGRAM, BID
     Route: 048
     Dates: start: 20150421, end: 20221217
  2. LAMOTRIGINE [Concomitant]
     Active Substance: LAMOTRIGINE
     Dosage: 25 MILLIGRAM, QD
     Route: 048
  3. RISPERIDONE [Concomitant]
     Active Substance: RISPERIDONE
     Dosage: UNK, 2+3MG
     Route: 048
  4. RISPERIDONE [Concomitant]
     Active Substance: RISPERIDONE
     Dosage: 3 MILLIGRAM, BID
     Route: 065
  5. VALPROATE SODIUM [Concomitant]
     Active Substance: VALPROATE SODIUM
     Dosage: 1 GRAM, BID
     Route: 048
  6. LITHIUM CITRATE [Concomitant]
     Active Substance: LITHIUM CITRATE
     Dosage: 208 MILLIGRAM, BID
     Route: 048
  7. PREGABALIN [Concomitant]
     Active Substance: PREGABALIN
     Dosage: 300 MILLIGRAM, BID
     Route: 048
  8. PIRENZEPINE [Concomitant]
     Active Substance: PIRENZEPINE
     Dosage: 50 MILLIGRAM, TID
     Route: 048
  9. GLYCOPYRRONIUM [Concomitant]
     Active Substance: GLYCOPYRRONIUM
     Dosage: 0.5 MILLIGRAM, BID
     Route: 048

REACTIONS (9)
  - Mental impairment [Not Recovered/Not Resolved]
  - Hallucination, auditory [Unknown]
  - Platelet count decreased [Recovering/Resolving]
  - Lethargy [Recovered/Resolved]
  - Haemoglobin decreased [Not Recovered/Not Resolved]
  - White blood cell count decreased [Recovered/Resolved]
  - Neutrophil count decreased [Recovered/Resolved]
  - Lower respiratory tract infection [Recovered/Resolved]
  - Infection [Unknown]

NARRATIVE: CASE EVENT DATE: 20221122
